FAERS Safety Report 16989800 (Version 1)
Quarter: 2019Q4

REPORT INFORMATION
  Report Type: Spontaneous
  Country: CA (occurrence: CA)
  Receive Date: 20191104
  Receipt Date: 20191104
  Transmission Date: 20200122
  Serious: Yes (Disabling, Other)
  Sender: FDA-Public Use
  Company Number: CA-PFIZER INC-2019467234

PATIENT
  Age: 68 Year
  Sex: Female
  Weight: 60.32 kg

DRUGS (2)
  1. HALOPERIDOL DECANOATE. [Suspect]
     Active Substance: HALOPERIDOL DECANOATE
     Dosage: 1 DF, UNK (TOTAL)
     Route: 051
  2. ATIVAN [Suspect]
     Active Substance: LORAZEPAM
     Dosage: UNK
     Route: 051

REACTIONS (8)
  - Amnesia [Unknown]
  - Hallucination [Unknown]
  - Restlessness [Unknown]
  - Muscle twitching [Unknown]
  - Tremor [Unknown]
  - Dysphonia [Unknown]
  - Memory impairment [Unknown]
  - Movement disorder [Unknown]
